FAERS Safety Report 10262844 (Version 4)
Quarter: 2015Q1

REPORT INFORMATION
  Report Type: Spontaneous
  Country: US (occurrence: US)
  Receive Date: 20140626
  Receipt Date: 20150218
  Transmission Date: 20150720
  Serious: Yes (Hospitalization, Congenital Anomaly, Other)
  Sender: FDA-Public Use
  Company Number: US-ELI_LILLY_AND_COMPANY-US201406008549

PATIENT
  Weight: 3.4 kg

DRUGS (1)
  1. FLUOXETINE HYDROCHLORIDE. [Suspect]
     Active Substance: FLUOXETINE HYDROCHLORIDE
     Indication: PRODUCT USED FOR UNKNOWN INDICATION
     Dosage: UNK UNK, UNKNOWN
     Route: 064

REACTIONS (12)
  - Polydactyly [Recovered/Resolved]
  - Gait disturbance [Recovered/Resolved]
  - Congenital foot malformation [Unknown]
  - Spina bifida occulta [Unknown]
  - Phalangeal agenesis [Not Recovered/Not Resolved]
  - Foot deformity [Unknown]
  - Cleft lip [Unknown]
  - Oral cavity fistula [Unknown]
  - Cellulitis [Recovered/Resolved]
  - Foetal exposure during pregnancy [Recovered/Resolved]
  - Pain in extremity [Unknown]
  - Pain in extremity [Recovering/Resolving]
